FAERS Safety Report 11685364 (Version 1)
Quarter: 2015Q4

REPORT INFORMATION
  Report Type: Spontaneous
  Country: US (occurrence: None)
  Receive Date: 20151029
  Receipt Date: 20151029
  Transmission Date: 20160304
  Serious: Yes (Other)
  Sender: FDA-Public Use
  Company Number: None

PATIENT
  Age: 43 Year
  Sex: Female
  Weight: 85.73 kg

DRUGS (3)
  1. IBUPROFEN. [Concomitant]
     Active Substance: IBUPROFEN
  2. TRANSDERM SCOP [Suspect]
     Active Substance: SCOPOLAMINE
     Indication: MOTION SICKNESS
     Dosage: EVERY 3 DAYS, APPLIED AS MEDICATED PATCH TO SKIN
     Route: 061
     Dates: start: 20151023, end: 20151025
  3. FLUOCINOMIDE [Concomitant]

REACTIONS (21)
  - Joint stiffness [None]
  - Ocular hyperaemia [None]
  - Peripheral swelling [None]
  - Vision blurred [None]
  - Reading disorder [None]
  - Migraine [None]
  - Balance disorder [None]
  - Peripheral coldness [None]
  - Visual impairment [None]
  - Ocular discomfort [None]
  - Dry mouth [None]
  - Vertigo [None]
  - Thinking abnormal [None]
  - Dry eye [None]
  - Impaired work ability [None]
  - Polymenorrhoea [None]
  - Discomfort [None]
  - Oedema peripheral [None]
  - Flushing [None]
  - Speech disorder [None]
  - Tremor [None]

NARRATIVE: CASE EVENT DATE: 20151023
